FAERS Safety Report 17841305 (Version 1)
Quarter: 2020Q2

REPORT INFORMATION
  Report Type: Spontaneous
  Country: US (occurrence: US)
  Receive Date: 20200529
  Receipt Date: 20200529
  Transmission Date: 20200714
  Serious: Yes (Hospitalization)
  Sender: FDA-Public Use
  Company Number: US-009507513-2005USA007567

PATIENT
  Age: 43 Year
  Sex: Female

DRUGS (4)
  1. INTRON A [Suspect]
     Active Substance: INTERFERON ALFA-2B
     Dosage: 1 MILLILITER, QD, STRENGTH: 18 MU MDV, ROUTE: INJECTION
  2. ZIDOVUDINE. [Concomitant]
     Active Substance: ZIDOVUDINE
     Dosage: UNK
  3. INTRON A [Suspect]
     Active Substance: INTERFERON ALFA-2B
     Indication: ADULT T-CELL LYMPHOMA/LEUKAEMIA
     Dosage: 1 MILLILITER, QD, STRENGTH: 18 MU MDV, ROUTE: INJECTION
     Dates: start: 20200310
  4. INTRON A [Suspect]
     Active Substance: INTERFERON ALFA-2B
     Dosage: 1 MILLILITER, QD, STRENGTH: 18 MU MDV, ROUTE: INJECTION

REACTIONS (7)
  - Pyrexia [Recovering/Resolving]
  - Asthenia [Recovering/Resolving]
  - Adverse event [Recovering/Resolving]
  - Product dose omission [Unknown]
  - Product use in unapproved indication [Unknown]
  - Haemoptysis [Recovering/Resolving]
  - Headache [Recovering/Resolving]

NARRATIVE: CASE EVENT DATE: 20200310
